FAERS Safety Report 15331042 (Version 1)
Quarter: 2018Q3

REPORT INFORMATION
  Report Type: Spontaneous
  Country: FR (occurrence: FR)
  Receive Date: 20180829
  Receipt Date: 20180829
  Transmission Date: 20181010
  Serious: Yes (Other)
  Sender: FDA-Public Use
  Company Number: FR-ABBVIE-18K-056-2429223-00

PATIENT
  Age: 59 Year
  Sex: Female
  Weight: 75 kg

DRUGS (4)
  1. PROFENID [Concomitant]
     Active Substance: KETOPROFEN
     Indication: PRODUCT USED FOR UNKNOWN INDICATION
  2. LEVOTHYROX [Concomitant]
     Active Substance: LEVOTHYROXINE
     Indication: PRODUCT USED FOR UNKNOWN INDICATION
  3. HUMIRA [Suspect]
     Active Substance: ADALIMUMAB
     Indication: PSORIATIC ARTHROPATHY
     Route: 058
     Dates: start: 20180416, end: 20180717
  4. LAMALINE [Concomitant]
     Indication: PRODUCT USED FOR UNKNOWN INDICATION

REACTIONS (2)
  - Pustular psoriasis [Not Recovered/Not Resolved]
  - Eczema [Not Recovered/Not Resolved]

NARRATIVE: CASE EVENT DATE: 201805
